FAERS Safety Report 17254422 (Version 2)
Quarter: 2020Q1

REPORT INFORMATION
  Report Type: Spontaneous
  Country: JP (occurrence: JP)
  Receive Date: 20200109
  Receipt Date: 20200206
  Transmission Date: 20200409
  Serious: Yes (Hospitalization)
  Sender: FDA-Public Use
  Company Number: JP-DSJP-DSJ-2020-100411

PATIENT

DRUGS (2)
  1. LIXIANA OD TABLETS 30MG [Suspect]
     Active Substance: EDOXABAN TOSYLATE
     Indication: ATRIAL FIBRILLATION
     Dosage: 30 MG, QD
     Route: 048
     Dates: start: 20180507, end: 20191118
  2. VALSARTAN. [Concomitant]
     Active Substance: VALSARTAN
     Dosage: 80 MG, QD
     Route: 048

REACTIONS (4)
  - Haemorrhage subcutaneous [Recovered/Resolved]
  - Haemoptysis [Recovered/Resolved]
  - Haemorrhage [Unknown]
  - Cerebral infarction [Unknown]

NARRATIVE: CASE EVENT DATE: 20191118
